FAERS Safety Report 10046770 (Version 1)
Quarter: 2014Q1

REPORT INFORMATION
  Report Type: Spontaneous
  Country: IN (occurrence: IN)
  Receive Date: 20140331
  Receipt Date: 20140331
  Transmission Date: 20141002
  Serious: Yes (Other)
  Sender: FDA-Public Use
  Company Number: IN-ROCHE-1371423

PATIENT
  Sex: 0

DRUGS (1)
  1. HERCLON [Suspect]
     Indication: BREAST CANCER
     Route: 065

REACTIONS (2)
  - Breast cancer recurrent [Unknown]
  - Metastases to bone [Unknown]
